FAERS Safety Report 10064582 (Version 1)
Quarter: 2014Q2

REPORT INFORMATION
  Report Type: Spontaneous
  Country: US (occurrence: None)
  Receive Date: 20140407
  Receipt Date: 20140407
  Transmission Date: 20141212
  Serious: Yes (Disabling)
  Sender: FDA-Public Use
  Company Number: None

PATIENT
  Age: 26 Year
  Sex: Female
  Weight: 145.15 kg

DRUGS (1)
  1. MIRENA [Suspect]
     Dates: start: 20130523, end: 20140314

REACTIONS (6)
  - Vaginal infection [None]
  - Rash [None]
  - Nausea [None]
  - Headache [None]
  - Breast pain [None]
  - Vaginal pH abnormal [None]
